FAERS Safety Report 9306967 (Version 1)
Quarter: 2013Q2

REPORT INFORMATION
  Report Type: Spontaneous
  Country: US (occurrence: US)
  Receive Date: 20130523
  Receipt Date: 20130523
  Transmission Date: 20140414
  Serious: No
  Sender: FDA-Public Use
  Company Number: US-AMGEN-USASP2013002402

PATIENT
  Sex: Female

DRUGS (1)
  1. ARANESP [Suspect]
     Indication: RENAL FAILURE CHRONIC
     Dosage: UNK UNK, QWK

REACTIONS (4)
  - Fatigue [Unknown]
  - Pruritus [Unknown]
  - Malaise [Unknown]
  - Haemoglobin decreased [Unknown]
